FAERS Safety Report 21688856 (Version 3)
Quarter: 2023Q1

REPORT INFORMATION
  Report Type: Report from Study
  Country: US (occurrence: US)
  Receive Date: 20221206
  Receipt Date: 20230215
  Transmission Date: 20230418
  Serious: Yes (Other)
  Sender: FDA-Public Use
  Company Number: US-ABBVIE-4191115

PATIENT
  Age: 78 Year
  Sex: Female

DRUGS (1)
  1. HUMIRA [Suspect]
     Active Substance: ADALIMUMAB
     Indication: Rheumatoid arthritis
     Route: 058
     Dates: start: 20180301

REACTIONS (15)
  - Cardiac pacemaker insertion [Unknown]
  - Peripheral swelling [Unknown]
  - Malaise [Unknown]
  - Heart rate abnormal [Unknown]
  - Arthralgia [Not Recovered/Not Resolved]
  - Pain [Unknown]
  - Intervertebral disc disorder [Unknown]
  - Musculoskeletal chest pain [Unknown]
  - Influenza [Unknown]
  - Sciatica [Unknown]
  - Gait disturbance [Unknown]
  - Spinal disorder [Unknown]
  - Pain in extremity [Not Recovered/Not Resolved]
  - Mobility decreased [Unknown]
  - Heart rate decreased [Unknown]

NARRATIVE: CASE EVENT DATE: 20221031
